FAERS Safety Report 5241338-8 (Version None)
Quarter: 2007Q1

REPORT INFORMATION
  Report Type: 
  Country: None (occurrence: None)
  Receive Date: 20070220
  Receipt Date: 20070208
  Transmission Date: 20070707
  Serious: Yes (Other)
  Sender: FDA-Public Use
  Company Number: US-JNJFOC-20070202374

PATIENT
  Age: 53 Year
  Sex: Female

DRUGS (5)
  1. INFLIXIMAB [Suspect]
     Dosage: 11 MONTHS AFTER FIRST INFUSION, DATE NOT SPECIFIED
     Route: 042
  2. INFLIXIMAB [Suspect]
     Dosage: WEEK 6, DATE NOT SPECIFIED
     Route: 042
  3. INFLIXIMAB [Suspect]
     Dosage: WEEK 2, DATE NOT SPECIFIED
     Route: 042
  4. INFLIXIMAB [Suspect]
     Indication: SWEAT GLAND INFECTION
     Dosage: WEEK 0, DATE NOT SPECIFIED
     Route: 042
  5. ETANERCEPT [Concomitant]
     Dosage: ALTERNATE WEEKS

REACTIONS (1)
  - LUPUS-LIKE SYNDROME [None]
